FAERS Safety Report 9465607 (Version 2)
Quarter: 2013Q4

REPORT INFORMATION
  Report Type: Spontaneous
  Country: US (occurrence: US)
  Receive Date: 20130820
  Receipt Date: 20131031
  Transmission Date: 20140711
  Serious: No
  Sender: FDA-Public Use
  Company Number: US-JNJFOC-20130803219

PATIENT
  Age: 52 Year
  Sex: Female
  Weight: 78.93 kg

DRUGS (7)
  1. DURAGESIC [Suspect]
     Indication: ABDOMINAL PAIN
     Route: 062
     Dates: start: 201210
  2. PERCOCET [Concomitant]
     Indication: ABDOMINAL PAIN
     Dosage: 10/325MG
     Route: 048
     Dates: start: 199003
  3. BELLADONNA [Concomitant]
     Indication: IRRITABLE BOWEL SYNDROME
     Route: 048
     Dates: start: 199509
  4. MECLIZINE [Concomitant]
     Indication: VERTIGO
     Route: 048
     Dates: start: 2013
  5. LEXAPRO [Concomitant]
     Indication: ANXIETY
     Route: 048
     Dates: start: 199009
  6. ZOFRAN [Concomitant]
     Indication: NAUSEA
     Route: 048
     Dates: start: 201003
  7. ESTRADIOL [Concomitant]
     Indication: BLOOD OESTROGEN
     Route: 065
     Dates: start: 199009

REACTIONS (5)
  - Product quality issue [Unknown]
  - Product quality issue [Unknown]
  - Rash [Unknown]
  - Poor quality drug administered [Unknown]
  - Wrong technique in drug usage process [Unknown]
